FAERS Safety Report 9188639 (Version 1)
Quarter: 2013Q1

REPORT INFORMATION
  Report Type: Spontaneous
  Country: BR (occurrence: BR)
  Receive Date: 20130325
  Receipt Date: 20130325
  Transmission Date: 20140127
  Serious: Yes (Hospitalization)
  Sender: FDA-Public Use
  Company Number: BR-PFIZER INC-2013077544

PATIENT
  Age: 66 Year
  Sex: Male
  Weight: 93 kg

DRUGS (7)
  1. SUTENT [Suspect]
     Indication: METASTATIC RENAL CELL CARCINOMA
     Dosage: 50 MG, 1 TABLET OF 50MG ONCE A DAY
     Route: 048
     Dates: start: 20130225, end: 20130228
  2. LOSARTAN [Concomitant]
     Dosage: 50 MG, 2X/DAY
  3. ANCORON [Concomitant]
     Dosage: 200 UNK UNIT, 1X/DAY
  4. LASIX [Concomitant]
     Dosage: 20 MG, 1X/DAY
  5. SIMVASTATIN [Concomitant]
     Dosage: 20 MG, 1X/DAY
  6. ACETYLSALICYLIC ACID [Concomitant]
     Dosage: 100 MG, 1X/DAY
  7. PACO [Concomitant]
     Dosage: UNK, ONCE A DAY

REACTIONS (9)
  - Cardiac failure congestive [Recovered/Resolved]
  - Pulmonary oedema [Recovered/Resolved]
  - Middle insomnia [Recovered/Resolved]
  - Dyspnoea [Recovered/Resolved]
  - Chest pain [Recovered/Resolved]
  - Hypotension [Recovered/Resolved]
  - Oxygen saturation decreased [Recovered/Resolved]
  - Tachycardia [Recovered/Resolved]
  - Abdominal pain upper [Recovered/Resolved]
